FAERS Safety Report 18584954 (Version 1)
Quarter: 2020Q4

REPORT INFORMATION
  Report Type: Spontaneous
  Country: IR (occurrence: IR)
  Receive Date: 20201207
  Receipt Date: 20201207
  Transmission Date: 20210114
  Serious: Yes (Hospitalization, Other)
  Sender: FDA-Public Use
  Company Number: IR-LUPIN PHARMACEUTICALS INC.-2020-07241

PATIENT
  Age: 30 Year
  Sex: Male

DRUGS (10)
  1. GABAPENTIN. [Suspect]
     Active Substance: GABAPENTIN
     Indication: POST HERPETIC NEURALGIA
     Dosage: 100 MILLIGRAM, QD (AT BEDTIME)
     Route: 048
  2. TRAMADOL HYDROCHLORIDE. [Suspect]
     Active Substance: TRAMADOL HYDROCHLORIDE
     Indication: POST HERPETIC NEURALGIA
     Dosage: 50 MILLIGRAM, PRN (ONCE EVERY 4 TO 6 HOURS)
     Route: 048
  3. NORTRIPTYLINE [Suspect]
     Active Substance: NORTRIPTYLINE
     Dosage: 20 MILLIGRAM, QD (EVERY NIGHT AT BEDTIME)
     Route: 048
  4. MORPHINE SULPHATE [Suspect]
     Active Substance: MORPHINE SULFATE
     Indication: POST HERPETIC NEURALGIA
     Dosage: UNK
     Route: 065
  5. PREDNISONE. [Suspect]
     Active Substance: PREDNISONE
     Dosage: 15 MILLIGRAM, BID (ON DAYS 8 THROUGH 14)
     Route: 048
  6. ACYCLOVIR SODIUM. [Concomitant]
     Active Substance: ACYCLOVIR SODIUM
     Indication: HERPES ZOSTER
     Dosage: 800 MILLIGRAM (FIVE TIMES DAILY)
     Route: 048
  7. NORTRIPTYLINE [Suspect]
     Active Substance: NORTRIPTYLINE
     Indication: POST HERPETIC NEURALGIA
     Dosage: 10 MILLIGRAM, QD (EVERY NIGHT AT BEDTIME)
     Route: 048
  8. CAPSAICIN. [Suspect]
     Active Substance: CAPSAICIN
     Indication: POST HERPETIC NEURALGIA
     Dosage: 0.025 PERCENT (APPLIED TO AFFECTED AREAS 3-5 TIMES DAILY)
     Route: 061
  9. PREDNISONE. [Suspect]
     Active Substance: PREDNISONE
     Indication: POST HERPETIC NEURALGIA
     Dosage: 30 MILLIGRAM, BID (ON DAYS 1 THROUGH 7)
     Route: 048
  10. PREDNISONE. [Suspect]
     Active Substance: PREDNISONE
     Dosage: 7.5 MILLIGRAM, BID (ON DAYS 15 THROUGH 21)
     Route: 048

REACTIONS (1)
  - Drug ineffective [Unknown]
